FAERS Safety Report 13609559 (Version 2)
Quarter: 2017Q3

REPORT INFORMATION
  Report Type: Report from Study
  Country: US (occurrence: US)
  Receive Date: 20170602
  Receipt Date: 20170726
  Transmission Date: 20171127
  Serious: Yes (Hospitalization, Other)
  Sender: FDA-Public Use
  Company Number: US-ALEXION-A201705765

PATIENT
  Sex: Female

DRUGS (1)
  1. SOLIRIS [Suspect]
     Active Substance: ECULIZUMAB
     Indication: PAROXYSMAL NOCTURNAL HAEMOGLOBINURIA
     Dosage: 900 MG, Q2W
     Route: 042

REACTIONS (1)
  - Hospitalisation [Unknown]
